FAERS Safety Report 7737186-7 (Version None)
Quarter: 2011Q3

REPORT INFORMATION
  Report Type: 
  Country: None (occurrence: None)
  Receive Date: 20110902
  Receipt Date: 20110824
  Transmission Date: 20111222
  Serious: Yes (Hospitalization)
  Sender: FDA-Public Use
  Company Number: 2011MA012550

PATIENT
  Age: 12 Year
  Sex: Male

DRUGS (4)
  1. VALPROIC ACID [Suspect]
     Indication: COMPLEX PARTIAL SEIZURES
  2. LEVETIRACETAM [Suspect]
     Indication: COMPLEX PARTIAL SEIZURES
     Dosage: 1400 MG;QD
  3. ZONISAMIDE [Suspect]
     Indication: COMPLEX PARTIAL SEIZURES
     Dosage: 100 MG;BID
  4. OXCARBAZEPINE [Suspect]
     Indication: COMPLEX PARTIAL SEIZURES
     Dosage: 30 MG/KG

REACTIONS (11)
  - CONVULSION [None]
  - FALL [None]
  - HYPOTONIA [None]
  - PYREXIA [None]
  - MYOCLONUS [None]
  - GRAND MAL CONVULSION [None]
  - FEELING JITTERY [None]
  - FATIGUE [None]
  - BALANCE DISORDER [None]
  - COMPLEX PARTIAL SEIZURES [None]
  - MUSCLE TWITCHING [None]
